FAERS Safety Report 6929843-7 (Version None)
Quarter: 2010Q3

REPORT INFORMATION
  Report Type: 
  Country: None (occurrence: None)
  Receive Date: 20100818
  Receipt Date: 20100804
  Transmission Date: 20110219
  Serious: Yes (Other)
  Sender: FDA-Public Use
  Company Number: JP-RANBAXY-2010RR-35786

PATIENT
  Age: 85 Year
  Sex: Female
  Weight: 40 kg

DRUGS (3)
  1. ETODOLAC [Suspect]
     Indication: OSTEOARTHRITIS
     Dosage: 400 MG, BID
     Route: 048
  2. KALIMATE [Concomitant]
  3. CORTRIL [Concomitant]

REACTIONS (4)
  - BRADYCARDIA [None]
  - DIZZINESS [None]
  - HYPERKALAEMIA [None]
  - NAUSEA [None]
